FAERS Safety Report 6829579-7 (Version None)
Quarter: 2010Q3

REPORT INFORMATION
  Report Type: 
  Country: None (occurrence: None)
  Receive Date: 20100709
  Receipt Date: 20070402
  Transmission Date: 20110219
  Serious: Yes (Other)
  Sender: FDA-Public Use
  Company Number: US-PFIZER INC-2007009945

PATIENT
  Sex: Female
  Weight: 78.9 kg

DRUGS (3)
  1. CHANTIX [Suspect]
     Indication: SMOKING CESSATION THERAPY
     Dates: start: 20061001
  2. ALPRAZOLAM [Suspect]
     Indication: SLEEP DISORDER
  3. ZIAC [Concomitant]
     Indication: HYPERTENSION

REACTIONS (9)
  - ABNORMAL DREAMS [None]
  - DRUG INEFFECTIVE [None]
  - DYSPNOEA [None]
  - MENOPAUSAL SYMPTOMS [None]
  - PANIC ATTACK [None]
  - SINUS DISORDER [None]
  - SLEEP DISORDER [None]
  - WEIGHT FLUCTUATION [None]
  - WEIGHT INCREASED [None]
